FAERS Safety Report 17834699 (Version 2)
Quarter: 2021Q1

REPORT INFORMATION
  Report Type: Spontaneous
  Country: US (occurrence: US)
  Receive Date: 20200528
  Receipt Date: 20210315
  Transmission Date: 20210419
  Serious: Yes (Hospitalization)
  Sender: FDA-Public Use
  Company Number: US-GLOBAL BLOOD THERAPEUTICS INC-US-GBT-20-01197

PATIENT
  Age: 34 Year
  Sex: Female

DRUGS (5)
  1. OXBRYTA [Suspect]
     Active Substance: VOXELOTOR
     Indication: SICKLE CELL DISEASE
     Route: 048
     Dates: start: 202001, end: 20200229
  2. AMLODIPINE [Concomitant]
     Active Substance: AMLODIPINE BESYLATE
     Indication: PRODUCT USED FOR UNKNOWN INDICATION
     Dosage: NOT PROVIDED
  3. HYDROXYUREA. [Concomitant]
     Active Substance: HYDROXYUREA
     Indication: PRODUCT USED FOR UNKNOWN INDICATION
     Dosage: NOT PROVIDED
  4. OXBRYTA [Suspect]
     Active Substance: VOXELOTOR
     Route: 048
     Dates: start: 202007, end: 202010
  5. CRIZANLIZUMAB [Concomitant]
     Active Substance: CRIZANLIZUMAB
     Indication: SICKLE CELL ANAEMIA
     Route: 042
     Dates: start: 20200806

REACTIONS (12)
  - Abdominal pain [Unknown]
  - Product dose omission issue [Unknown]
  - Sickle cell anaemia with crisis [Unknown]
  - Pneumonia [Recovered/Resolved]
  - Diarrhoea [Unknown]
  - Fatigue [Unknown]
  - Headache [Unknown]
  - Off label use [Unknown]
  - Sickle cell anaemia with crisis [Recovered/Resolved]
  - Pain [Recovered/Resolved]
  - Nausea [Unknown]
  - Pyrexia [Unknown]

NARRATIVE: CASE EVENT DATE: 202001
